FAERS Safety Report 6023405-4 (Version None)
Quarter: 2008Q4

REPORT INFORMATION
  Report Type: 
  Country: None (occurrence: None)
  Receive Date: 20081230
  Receipt Date: 20081223
  Transmission Date: 20090506
  Serious: Yes (Other)
  Sender: FDA-Public Use
  Company Number: US-BRISTOL-MYERS SQUIBB COMPANY-14381248

PATIENT
  Age: 78 Year
  Sex: Male

DRUGS (13)
  1. ORENCIA [Suspect]
     Indication: RHEUMATOID ARTHRITIS
     Dosage: RECEIVED 3 DOSES; STARTED ON 13-AUG-2008
     Route: 042
     Dates: start: 20080924
  2. METHOTREXATE [Suspect]
     Dosage: METHOTREXATE 25MG
  3. PREDNISONE [Suspect]
  4. PROSCAR [Concomitant]
  5. PLAQUENIL [Concomitant]
  6. FOLIC ACID [Concomitant]
  7. COUMADIN [Concomitant]
  8. PREVACID [Concomitant]
  9. TRAMADOL [Concomitant]
  10. SKELAXIN [Concomitant]
  11. ALLEGRA [Concomitant]
  12. FLOMAX [Concomitant]
  13. GLUMETZA [Concomitant]

REACTIONS (1)
  - CARDIAC FAILURE CONGESTIVE [None]
